FAERS Safety Report 23967537 (Version 2)
Quarter: 2024Q2

REPORT INFORMATION
  Report Type: Spontaneous
  Country: GB (occurrence: GB)
  Receive Date: 20240612
  Receipt Date: 20240621
  Transmission Date: 20240715
  Serious: Yes (Other)
  Sender: FDA-Public Use
  Company Number: GB-PFIZER INC-PV202400067479

PATIENT
  Age: 53 Year
  Sex: Female

DRUGS (3)
  1. DOCETAXEL [Suspect]
     Active Substance: DOCETAXEL\DOCETAXEL ANHYDROUS
     Indication: Thymoma
     Dosage: UNK UNK, QCY
  2. CARBOPLATIN [Concomitant]
     Active Substance: CARBOPLATIN
     Indication: Thymoma
     Dosage: UNK UNK, QCY
  3. PACLITAXEL [Concomitant]
     Active Substance: PACLITAXEL
     Indication: Thymoma
     Dosage: UNK UNK, QCY

REACTIONS (2)
  - Deep vein thrombosis [Unknown]
  - Neuropathy peripheral [Unknown]
